FAERS Safety Report 20379864 (Version 1)
Quarter: 2022Q1

REPORT INFORMATION
  Report Type: Other
  Country: None (occurrence: AU)
  Receive Date: 20220126
  Receipt Date: 20220126
  Transmission Date: 20220424
  Serious: Yes (Life-Threatening, Hospitalization, Other)
  Sender: FDA-Public Use
  Company Number: AU-Breckenridge Pharmaceutical, Inc.-2124319

PATIENT
  Age: 43 Year
  Sex: Female

DRUGS (5)
  1. LEVETIRACETAM [Suspect]
     Active Substance: LEVETIRACETAM
     Route: 048
  2. paracetamol/codeine (500mg/30mg) [Concomitant]
  3. ALCOHOL [Concomitant]
     Active Substance: ALCOHOL
  4. Inhaled Salbutamol [Concomitant]
  5. Inhaled Beclomethasone [Concomitant]

REACTIONS (5)
  - Depressed level of consciousness [Unknown]
  - Bradycardia [Unknown]
  - Oliguria [Unknown]
  - Overdose [Unknown]
  - Hypotension [Unknown]
